FAERS Safety Report 9134628 (Version 1)
Quarter: 2013Q1

REPORT INFORMATION
  Report Type: Spontaneous
  Country: FR (occurrence: FR)
  Receive Date: 20130304
  Receipt Date: 20130304
  Transmission Date: 20140127
  Serious: Yes (Hospitalization)
  Sender: FDA-Public Use
  Company Number: FR-BAYER-2013-025018

PATIENT
  Age: 61 Year
  Sex: Female

DRUGS (3)
  1. CIFLOX [Suspect]
     Indication: LUNG DISORDER
     Dosage: 500 MG, BID
     Route: 048
     Dates: start: 20121212, end: 20121220
  2. AUGMENTIN [Suspect]
     Indication: LUNG DISORDER
     Dosage: 1 G, TID
     Route: 048
     Dates: start: 20121212, end: 20121220
  3. FLECTOR [Suspect]
     Indication: ARTHRALGIA
     Dosage: 1 DF, QD
     Route: 003
     Dates: start: 20121221, end: 20121226

REACTIONS (1)
  - Vascular purpura [Recovered/Resolved]
